FAERS Safety Report 8213152-2 (Version None)
Quarter: 2012Q1

REPORT INFORMATION
  Report Type: 
  Country: None (occurrence: None)
  Receive Date: 20120315
  Receipt Date: 20120309
  Transmission Date: 20120608
  Serious: Yes (Hospitalization, Other)
  Sender: FDA-Public Use
  Company Number: US-PFIZER INC-2012064407

PATIENT
  Age: 79 Year
  Sex: Female

DRUGS (9)
  1. METOPROLOL TARTRATE [Interacting]
     Dosage: UNK
  2. SERTRALINE HYDROCHLORIDE [Suspect]
     Indication: INSOMNIA
     Dosage: 150 MG, 1X/DAY
  3. MIRTAZAPINE [Interacting]
     Indication: INSOMNIA
     Dosage: AT BEDTIME
  4. GLYBURIDE [Interacting]
     Dosage: UNK
  5. MIRTAZAPINE [Interacting]
     Indication: ANXIETY
  6. SERTRALINE HYDROCHLORIDE [Interacting]
     Indication: ANXIETY
  7. MIRTAZAPINE [Interacting]
     Indication: DECREASED APPETITE
  8. SERTRALINE HYDROCHLORIDE [Interacting]
     Indication: DECREASED APPETITE
  9. LORAZEPAM [Interacting]
     Indication: INSOMNIA
     Dosage: 0.5 MG, 1X/DAY

REACTIONS (4)
  - ALCOHOL INTERACTION [None]
  - ALCOHOL ABUSE [None]
  - BLOOD GLUCOSE INCREASED [None]
  - BLOOD PRESSURE INCREASED [None]
